FAERS Safety Report 8669606 (Version 4)
Quarter: 2013Q4

REPORT INFORMATION
  Report Type: Spontaneous
  Country: JP (occurrence: JP)
  Receive Date: 20120718
  Receipt Date: 20131101
  Transmission Date: 20140711
  Serious: Yes (Other)
  Sender: FDA-Public Use
  Company Number: JP-009507513-1207JPN002329

PATIENT
  Age: 36 Year
  Sex: Female
  Weight: 71 kg

DRUGS (3)
  1. GASTER [Suspect]
     Indication: GASTRITIS
     Dosage: 20 MG, BID
     Route: 048
     Dates: start: 20120625, end: 20120627
  2. GASTER [Suspect]
     Dosage: 10 MG, QD
     Route: 048
  3. SELBEX [Concomitant]
     Indication: EPIGASTRIC DISCOMFORT
     Dosage: UNK
     Route: 048
     Dates: end: 20120627

REACTIONS (2)
  - Rash papular [Recovered/Resolved]
  - Liver function test abnormal [Recovered/Resolved]
